FAERS Safety Report 12976441 (Version 1)
Quarter: 2016Q4

REPORT INFORMATION
  Report Type: Spontaneous
  Country: US (occurrence: US)
  Receive Date: 20161127
  Receipt Date: 20161127
  Transmission Date: 20170207
  Serious: No
  Sender: FDA-Public Use
  Company Number: US-B.I. PHARMACEUTICALS,INC./RIDGEFIELD-2016-BI-079845

PATIENT
  Age: 46 Year
  Sex: Female

DRUGS (5)
  1. COMBIVENT [Suspect]
     Active Substance: ALBUTEROL SULFATE\IPRATROPIUM BROMIDE
     Indication: ASTHMA
     Dosage: 2-8 INHALATIONS PER DAY AS NEEDED;  FORM STRENGTH: 20 MCG / 100 MCG; FORMULATION: INHALATION SPRAY
     Route: 048
     Dates: start: 2011
  2. ZOLOFT [Concomitant]
     Active Substance: SERTRALINE HYDROCHLORIDE
     Indication: ANXIETY
  3. ZOLOFT [Concomitant]
     Active Substance: SERTRALINE HYDROCHLORIDE
     Indication: DEPRESSION
     Dosage: 1 DAILY;  FORM STRENGTH: 100MG; FORMULATION: CAPSULE
     Route: 048
  4. ADVAIR HFA [Concomitant]
     Active Substance: FLUTICASONE PROPIONATE\SALMETEROL XINAFOATE
     Indication: ASTHMA
     Dosage: 1 PUFF TWICE A DAY;  FORM STRENGTH: 500 MCG; FORMULATION: INHALATION SPRAY
     Route: 055
     Dates: start: 2007
  5. SPIRIVA [Concomitant]
     Active Substance: TIOTROPIUM BROMIDE MONOHYDRATE
     Indication: ASTHMA
     Dosage: 1 CAPSULE DAILY;  FORM STRENGTH: 18MCG; FORMULATION: CAPSULE
     Route: 048
     Dates: start: 2015

REACTIONS (13)
  - Fatigue [Recovered/Resolved]
  - Choking [Recovered/Resolved]
  - Asthenia [Recovered/Resolved]
  - Off label use [Unknown]
  - Palpitations [Recovered/Resolved]
  - Syncope [Recovered/Resolved]
  - Sinusitis [Recovered/Resolved]
  - Dyspnoea [Recovered/Resolved]
  - Asthma [Recovered/Resolved]
  - Dyspnoea [Recovered/Resolved]
  - Asthenia [Recovered/Resolved]
  - Sputum retention [Recovered/Resolved]
  - Medication error [Not Recovered/Not Resolved]

NARRATIVE: CASE EVENT DATE: 2011
